FAERS Safety Report 4584943-4 (Version None)
Quarter: 2005Q1

REPORT INFORMATION
  Report Type: 
  Country: None (occurrence: None)
  Receive Date: 20050217
  Receipt Date: 20041116
  Transmission Date: 20050727
  Serious: Yes (Hospitalization, Other)
  Sender: FDA-Public Use
  Company Number: US-GLAXOSMITHKLINE-A0534316A

PATIENT
  Age: 36 Year
  Sex: Female
  Weight: 79.1 kg

DRUGS (6)
  1. WELLBUTRIN [Suspect]
     Indication: DEPRESSION
     Dosage: 150MG PER DAY
     Route: 048
     Dates: start: 20041006, end: 20041025
  2. EFFEXOR XR [Concomitant]
     Indication: DEPRESSION
     Route: 048
  3. VITAMIN E [Concomitant]
     Indication: TARDIVE DYSKINESIA
     Dosage: 400IU THREE TIMES PER DAY
     Route: 048
     Dates: start: 20041014
  4. INDERAL [Concomitant]
     Indication: ANXIETY
     Dosage: 20MG THREE TIMES PER DAY
     Route: 048
  5. GEODON [Concomitant]
     Dosage: 80MG TWICE PER DAY
     Route: 048
  6. ARTANE [Concomitant]
     Dosage: 2MG THREE TIMES PER DAY
     Route: 048

REACTIONS (3)
  - PRURITUS [None]
  - RASH [None]
  - URTICARIA [None]
